FAERS Safety Report 21550737 (Version 1)
Quarter: 2022Q4

REPORT INFORMATION
  Report Type: Spontaneous
  Country: US (occurrence: US)
  Receive Date: 20221103
  Receipt Date: 20221103
  Transmission Date: 20230113
  Serious: No
  Sender: FDA-Public Use
  Company Number: US-PERRIGO-21US033067

PATIENT
  Age: 70 Year
  Sex: Female
  Weight: 77.098 kg

DRUGS (10)
  1. FAMOTIDINE [Suspect]
     Active Substance: FAMOTIDINE
     Indication: Dyspepsia
     Dosage: 20 MG, QD
     Route: 048
     Dates: start: 20211122, end: 20211128
  2. FAMOTIDINE [Suspect]
     Active Substance: FAMOTIDINE
     Dosage: 20 MG, QD PRN
     Route: 048
     Dates: start: 202112, end: 20211228
  3. LEXAPRO [Concomitant]
     Active Substance: ESCITALOPRAM OXALATE
     Indication: Depression
     Dosage: UNK
     Route: 065
     Dates: start: 2019
  4. NITROGLYCERIN [Concomitant]
     Active Substance: NITROGLYCERIN
     Indication: Chest pain
     Dosage: PRN
     Route: 065
     Dates: start: 2001
  5. OMEGA 3 COMPLETE [Concomitant]
     Indication: Routine health maintenance
     Dosage: UNK
     Route: 065
     Dates: start: 20211130
  6. RANOLAZINE [Concomitant]
     Active Substance: RANOLAZINE
     Indication: Angina pectoris
     Dosage: 500 MG, BID
     Route: 065
     Dates: start: 20210901
  7. RANOLAZINE [Concomitant]
     Active Substance: RANOLAZINE
     Dosage: 100 MG, BID
     Route: 065
     Dates: start: 2018, end: 20210831
  8. CRESTOR [Concomitant]
     Active Substance: ROSUVASTATIN CALCIUM
     Indication: Blood cholesterol abnormal
     Dosage: 5 MG, M, W, F
     Route: 065
     Dates: start: 20210720
  9. CRESTOR [Concomitant]
     Active Substance: ROSUVASTATIN CALCIUM
     Dosage: 2.5 MG, M, W, F
     Route: 065
     Dates: start: 2010, end: 20210719
  10. BYSTOLIC [Concomitant]
     Active Substance: NEBIVOLOL HYDROCHLORIDE
     Indication: Blood pressure abnormal
     Dosage: UNK
     Route: 065
     Dates: start: 20210429

REACTIONS (2)
  - Psychomotor hyperactivity [Recovering/Resolving]
  - Pruritus [Recovering/Resolving]

NARRATIVE: CASE EVENT DATE: 20211228
